FAERS Safety Report 23273342 (Version 7)
Quarter: 2024Q2

REPORT INFORMATION
  Report Type: Spontaneous
  Country: US (occurrence: US)
  Receive Date: 20231207
  Receipt Date: 20240614
  Transmission Date: 20240716
  Serious: Yes (Other)
  Sender: FDA-Public Use
  Company Number: US-MIRATI-MT2023PM05347

PATIENT
  Sex: Female

DRUGS (5)
  1. KRAZATI [Suspect]
     Active Substance: ADAGRASIB
     Indication: Colon cancer
     Dosage: 200 MG BID (1 TABLET IN THE MORNING AND ONE TABLET AT NIGHT 200 MG)
     Route: 048
     Dates: start: 20231107, end: 202311
  2. KRAZATI [Suspect]
     Active Substance: ADAGRASIB
     Indication: Colon cancer
     Dosage: 600 MG, QD
     Route: 048
     Dates: start: 20231117
  3. KRAZATI [Suspect]
     Active Substance: ADAGRASIB
     Dosage: 600 MG, BID
     Route: 048
     Dates: start: 202312
  4. FLUOROURACIL\IRINOTECAN [Suspect]
     Active Substance: FLUOROURACIL\IRINOTECAN
     Indication: Colon cancer
     Dosage: EVERY 3 WEEKS
     Route: 042
     Dates: end: 20240108
  5. FLUOROURACIL [Concomitant]
     Active Substance: FLUOROURACIL
     Indication: Colon cancer

REACTIONS (25)
  - Mental impairment [Recovered/Resolved]
  - Headache [Recovered/Resolved]
  - Frequent bowel movements [Not Recovered/Not Resolved]
  - Hypersomnia [Recovered/Resolved]
  - Dissociation [Recovered/Resolved]
  - Cerebral disorder [Unknown]
  - Alopecia [Recovering/Resolving]
  - Pain of skin [Recovering/Resolving]
  - Dry mouth [Not Recovered/Not Resolved]
  - Apathy [Not Recovered/Not Resolved]
  - Gastrooesophageal reflux disease [Recovering/Resolving]
  - Pruritus [Not Recovered/Not Resolved]
  - Photosensitivity reaction [Not Recovered/Not Resolved]
  - Pain [Not Recovered/Not Resolved]
  - Depression [Recovered/Resolved]
  - Anxiety [Recovered/Resolved]
  - Skin discolouration [Not Recovered/Not Resolved]
  - Fatigue [Not Recovered/Not Resolved]
  - Myalgia [Recovered/Resolved]
  - Asthenia [Recovering/Resolving]
  - Decreased appetite [Not Recovered/Not Resolved]
  - Diarrhoea [Recovering/Resolving]
  - Diarrhoea [Recovering/Resolving]
  - Nausea [Recovering/Resolving]
  - Off label use [Unknown]

NARRATIVE: CASE EVENT DATE: 20231107
